FAERS Safety Report 9938109 (Version 1)
Quarter: 2014Q1

REPORT INFORMATION
  Report Type: Report from Study
  Country: US (occurrence: US)
  Receive Date: 20140303
  Receipt Date: 20140303
  Transmission Date: 20141002
  Serious: Yes (Other)
  Sender: FDA-Public Use
  Company Number: US-ROCHE-1350460

PATIENT
  Sex: Female

DRUGS (1)
  1. AVASTIN [Suspect]
     Indication: MACULAR DEGENERATION
     Route: 065
     Dates: end: 20121213

REACTIONS (6)
  - Eye pruritus [Unknown]
  - Detachment of retinal pigment epithelium [Unknown]
  - Retinal haemorrhage [Unknown]
  - Cataract [Unknown]
  - Vitreous floaters [Unknown]
  - Off label use [Unknown]
